FAERS Safety Report 21191321 (Version 1)
Quarter: 2022Q3

REPORT INFORMATION
  Report Type: Spontaneous
  Country: US (occurrence: US)
  Receive Date: 20220809
  Receipt Date: 20220809
  Transmission Date: 20221026
  Serious: Yes (Other)
  Sender: FDA-Public Use
  Company Number: US-LUPIN PHARMACEUTICALS INC.-2022-10085

PATIENT
  Age: 67 Year
  Sex: Female

DRUGS (23)
  1. METRONIDAZOLE [Suspect]
     Active Substance: METRONIDAZOLE
     Indication: Helicobacter infection
     Dosage: 500 MILLIGRAM, BID (10-DAY SEQUENTIAL THERAPY)
     Route: 065
  2. METRONIDAZOLE [Suspect]
     Active Substance: METRONIDAZOLE
     Dosage: 250 MILLIGRAM, QID
     Route: 065
  3. LEVOFLOXACIN [Suspect]
     Active Substance: LEVOFLOXACIN
     Indication: Helicobacter infection
     Dosage: 500 MILLIGRAM, QD (COURSE OF LOAD THERAPY)
     Route: 065
  4. LEVOFLOXACIN [Suspect]
     Active Substance: LEVOFLOXACIN
     Dosage: 250 MILLIGRAM, BID
     Route: 065
  5. DOXYCYCLINE [Suspect]
     Active Substance: DOXYCYCLINE
     Indication: Helicobacter infection
     Dosage: 100 MILLIGRAM, BID (COURSE OF LOAD THERAPY)
     Route: 065
  6. DOXYCYCLINE [Suspect]
     Active Substance: DOXYCYCLINE
     Dosage: 100 MILLIGRAM, BID (MODIFIED LOAD THERAPY)
     Route: 065
  7. MOXIFLOXACIN [Suspect]
     Active Substance: MOXIFLOXACIN
     Indication: Helicobacter infection
     Dosage: 400 MILLIGRAM, QD (MODIFIED LOAD THERAPY)
     Route: 065
  8. RIFABUTIN [Suspect]
     Active Substance: RIFABUTIN
     Indication: Helicobacter infection
     Dosage: 300 MILLIGRAM, QD
     Route: 065
  9. AMOXICILLIN [Suspect]
     Active Substance: AMOXICILLIN
     Indication: Helicobacter infection
     Dosage: 1000 MILLIGRAM, BID (TRIPLE THERAPY)
     Route: 065
  10. AMOXICILLIN [Suspect]
     Active Substance: AMOXICILLIN
     Dosage: 1000 MILLIGRAM, BID (10-DAY SEQUENTIAL THERAPY; FOR THE FIRST 5 DAYS)
     Route: 065
  11. AMOXICILLIN [Suspect]
     Active Substance: AMOXICILLIN
     Dosage: 1000 MILLIGRAM, BID
     Route: 065
  12. CLARITHROMYCIN [Suspect]
     Active Substance: CLARITHROMYCIN
     Indication: Helicobacter infection
     Dosage: 250 MILLIGRAM, BID (TRIPLE THERAPY)
     Route: 065
  13. CLARITHROMYCIN [Suspect]
     Active Substance: CLARITHROMYCIN
     Dosage: 500 MILLIGRAM, BID (10-DAY SEQUENTIAL THERAPY)
     Route: 065
  14. LANSOPRAZOLE [Suspect]
     Active Substance: LANSOPRAZOLE
     Indication: Helicobacter infection
     Dosage: 30 MILLIGRAM, QD (TRIPLE THERAPY)
     Route: 065
  15. LANSOPRAZOLE [Suspect]
     Active Substance: LANSOPRAZOLE
     Dosage: 15 MILLIGRAM, BID (10-DAY SEQUENTIAL THERAPY)
     Route: 065
  16. OMEPRAZOLE [Suspect]
     Active Substance: OMEPRAZOLE
     Indication: Helicobacter infection
     Dosage: 20 MILLIGRAM, QD, COURSE OF LOAD THERAPY
     Route: 065
  17. OMEPRAZOLE [Suspect]
     Active Substance: OMEPRAZOLE
     Dosage: 20 MILLIGRAM, BID
     Route: 065
  18. OMEPRAZOLE [Suspect]
     Active Substance: OMEPRAZOLE
     Dosage: 20 MG, BID
     Route: 065
  19. NITAZOXANIDE [Suspect]
     Active Substance: NITAZOXANIDE
     Indication: Helicobacter infection
     Dosage: 500 MILLIGRAM, BID (COURSE OF LOAD THERAPY)
     Route: 065
  20. NITAZOXANIDE [Suspect]
     Active Substance: NITAZOXANIDE
     Dosage: 500 MILLIGRAM, BID (MODIFIED LOAD THERAPY)
     Route: 065
  21. TETRACYCLINE [Suspect]
     Active Substance: TETRACYCLINE
     Indication: Helicobacter infection
     Dosage: 500 MILLIGRAM, QID
     Route: 065
  22. PANTOPRAZOLE [Suspect]
     Active Substance: PANTOPRAZOLE
     Indication: Helicobacter infection
     Dosage: 40 MILLIGRAM, QD (MODIFIED LOAD THERAPY)
     Route: 065
  23. BISMUTH SUBSALICYLATE [Concomitant]
     Active Substance: BISMUTH SUBSALICYLATE
     Indication: Helicobacter infection
     Dosage: 300 MILLIGRAM
     Route: 065

REACTIONS (2)
  - Treatment failure [Unknown]
  - Off label use [Unknown]
